FAERS Safety Report 11042908 (Version 3)
Quarter: 2015Q2

REPORT INFORMATION
  Report Type: Spontaneous
  Country: CH (occurrence: CH)
  Receive Date: 20150417
  Receipt Date: 20150601
  Transmission Date: 20150821
  Serious: Yes (Other)
  Sender: FDA-Public Use
  Company Number: CH-AMGEN-CHESP2015036593

PATIENT
  Sex: Female

DRUGS (9)
  1. XGEVA [Suspect]
     Active Substance: DENOSUMAB
     Indication: HEPATIC CANCER METASTATIC
  2. TAXOL [Concomitant]
     Active Substance: PACLITAXEL
     Indication: HEPATIC CANCER
  3. AVASTIN [Concomitant]
     Active Substance: BEVACIZUMAB
     Dosage: 650 UNK, Q2WK
     Route: 042
     Dates: start: 20141202, end: 20150319
  4. XGEVA [Suspect]
     Active Substance: DENOSUMAB
     Indication: BREAST CANCER METASTATIC
     Dosage: UNK
     Route: 058
     Dates: start: 20140801, end: 20141216
  5. TAXOL [Concomitant]
     Active Substance: PACLITAXEL
     Indication: BONE CANCER METASTATIC
  6. XGEVA [Suspect]
     Active Substance: DENOSUMAB
     Indication: BONE CANCER METASTATIC
  7. DEXAMETHASONE. [Concomitant]
     Active Substance: DEXAMETHASONE
     Dosage: 4 MG, UNK
     Route: 042
     Dates: start: 20141202
  8. TAXOL [Concomitant]
     Active Substance: PACLITAXEL
     Indication: BREAST CANCER METASTATIC
     Dosage: 130 MG, QWK
     Route: 042
     Dates: start: 20141202, end: 20150319
  9. EPIRUBICIN [Concomitant]
     Active Substance: EPIRUBICIN
     Dosage: 60 MG, QWK
     Route: 042
     Dates: start: 20150414

REACTIONS (2)
  - Osteonecrosis of jaw [Not Recovered/Not Resolved]
  - Tooth disorder [Unknown]

NARRATIVE: CASE EVENT DATE: 201411
